FAERS Safety Report 26193331 (Version 1)
Quarter: 2025Q4

REPORT INFORMATION
  Report Type: Report from Study
  Country: AR (occurrence: AR)
  Receive Date: 20251223
  Receipt Date: 20251223
  Transmission Date: 20260118
  Serious: Yes (Other)
  Sender: ABBVIE
  Company Number: AR-ABBVIE-6603254

PATIENT
  Age: 38 Year
  Sex: Male

DRUGS (1)
  1. SKYRIZI [Suspect]
     Active Substance: RISANKIZUMAB-RZAA
     Indication: Crohn^s disease
     Dosage: LAST ADMIN DATE: 2025?SKYRIZI 360MG/2.4 ML
     Route: 058
     Dates: start: 20250821

REACTIONS (1)
  - Intestinal tuberculosis [Unknown]

NARRATIVE: CASE EVENT DATE: 20250101
